FAERS Safety Report 14288564 (Version 2)
Quarter: 2018Q1

REPORT INFORMATION
  Report Type: Spontaneous
  Country: SE (occurrence: SE)
  Receive Date: 20171214
  Receipt Date: 20180329
  Transmission Date: 20180509
  Serious: Yes (Hospitalization)
  Sender: FDA-Public Use
  Company Number: SE-ALLERGAN-1771102US

PATIENT
  Age: 36 Year
  Sex: Female

DRUGS (3)
  1. BOTOX [Suspect]
     Active Substance: ONABOTULINUMTOXINA
     Indication: NEURALGIA
     Dosage: 20 UNITS, SINGLE
     Route: 030
  2. ALVEDON [Suspect]
     Active Substance: ACETAMINOPHEN
     Indication: TOOTHACHE
     Dosage: UNK
     Dates: start: 20170824
  3. ALVEDON [Suspect]
     Active Substance: ACETAMINOPHEN
     Indication: NECK PAIN

REACTIONS (4)
  - Off label use [Unknown]
  - Chest discomfort [Unknown]
  - Palpitations [Unknown]
  - Blood pressure decreased [Unknown]

NARRATIVE: CASE EVENT DATE: 20170828
